FAERS Safety Report 6051196-X (Version None)
Quarter: 2009Q1

REPORT INFORMATION
  Report Type: 
  Country: None (occurrence: None)
  Receive Date: 20090121
  Receipt Date: 20090109
  Transmission Date: 20090719
  Serious: Yes (Congenital Anomaly)
  Sender: FDA-Public Use
  Company Number: CH-ACTAVISPR-ACTA005187

PATIENT
  Age: 26 Year
  Sex: Female

DRUGS (1)
  1. NEOTIGASON (ACITRETIN) [Suspect]
     Indication: SKIN PAPILLOMA
     Dosage: 1 DF DOSAGE FORM, ORAL
     Route: 048
     Dates: start: 20080508, end: 20080515

REACTIONS (3)
  - FOETAL DISTRESS SYNDROME [None]
  - MEDICATION ERROR [None]
  - PREGNANCY [None]
